FAERS Safety Report 5274366-7 (Version None)
Quarter: 2007Q1

REPORT INFORMATION
  Report Type: 
  Country: None (occurrence: None)
  Receive Date: 20070323
  Receipt Date: 20070312
  Transmission Date: 20070707
  Serious: Yes (Death, Life-Threatening)
  Sender: FDA-Public Use
  Company Number: JP-PFIZER INC-2006121325

PATIENT
  Sex: Male

DRUGS (9)
  1. ZYVOX [Suspect]
     Indication: BACTERAEMIA
     Route: 042
     Dates: start: 20051024, end: 20051028
  2. VORICONAZOLE [Concomitant]
     Indication: PNEUMONIA
     Route: 048
     Dates: start: 20051008, end: 20051025
  3. METRONIDAZOLE [Concomitant]
     Indication: BACTERAEMIA
     Route: 048
     Dates: start: 20051017, end: 20051027
  4. VANCOMYCIN [Concomitant]
     Indication: BACTERAEMIA
     Route: 042
     Dates: start: 20051015, end: 20051018
  5. BAKTAR [Concomitant]
     Route: 048
     Dates: start: 20050927, end: 20051013
  6. MINOCYCLINE HCL [Concomitant]
     Route: 042
     Dates: start: 20051024
  7. AMPHOTERICIN B [Concomitant]
     Indication: PNEUMONIA
     Route: 042
  8. GLEEVEC [Concomitant]
     Indication: NEOPLASM
     Route: 048
     Dates: start: 20050917
  9. PREDNISOLONE [Concomitant]
     Indication: NEOPLASM
     Route: 048
     Dates: start: 20050917

REACTIONS (2)
  - PLATELET COUNT DECREASED [None]
  - PULMONARY MYCOSIS [None]
